FAERS Safety Report 8625064-0 (Version None)
Quarter: 2012Q3

REPORT INFORMATION
  Report Type: 
  Country: None (occurrence: None)
  Receive Date: 20120827
  Receipt Date: 20120822
  Transmission Date: 20120928
  Serious: Yes (Other)
  Sender: FDA-Public Use
  Company Number: FR-PFIZER INC-2012205501

PATIENT
  Age: 45 Year
  Sex: Male

DRUGS (7)
  1. DIPRIVAN [Suspect]
     Indication: GENERAL ANAESTHESIA
     Dosage: SINGLE
     Route: 042
     Dates: start: 20111115, end: 20111115
  2. PANTOPRAZOLE SODIUM [Concomitant]
     Indication: GASTROOESOPHAGEAL REFLUX DISEASE
     Dosage: UNK
     Route: 048
  3. SEVOFLURANE [Concomitant]
     Indication: GENERAL ANAESTHESIA
  4. SYMBICORT [Concomitant]
     Indication: ASTHMA
     Dosage: UNK
     Route: 055
  5. AUGMENTIN '500' [Suspect]
     Indication: TOOTH EXTRACTION
     Dosage: SINGLE
     Route: 042
     Dates: start: 20111115, end: 20111115
  6. SOLU-MEDROL [Suspect]
     Indication: TOOTH EXTRACTION
     Dosage: SINGLE
     Route: 042
     Dates: start: 20111115, end: 20111115
  7. SUFENTANIL CITRATE [Suspect]
     Indication: GENERAL ANAESTHESIA
     Dosage: SINGLE
     Route: 042
     Dates: start: 20111115, end: 20111115

REACTIONS (5)
  - HYPOTENSION [None]
  - OXYGEN SATURATION DECREASED [None]
  - URTICARIA [None]
  - SKIN TEST NEGATIVE [None]
  - ANAPHYLACTIC REACTION [None]
